FAERS Safety Report 14580455 (Version 1)
Quarter: 2018Q1

REPORT INFORMATION
  Report Type: Spontaneous
  Country: SE (occurrence: SE)
  Receive Date: 20180228
  Receipt Date: 20180228
  Transmission Date: 20180509
  Serious: Yes (Hospitalization)
  Sender: FDA-Public Use
  Company Number: SE-CONCORDIA PHARMACEUTICALS INC.-E2B_00010133

PATIENT
  Age: 67 Year
  Sex: Male

DRUGS (11)
  1. FOLACIN 5 MG TABLETT [Concomitant]
  2. BENEPALI [Concomitant]
     Active Substance: ETANERCEPT
  3. ATORVASTATIN [Concomitant]
     Active Substance: ATORVASTATIN
  4. IPREN [Suspect]
     Active Substance: IBUPROFEN
     Route: 048
  5. ALVEDON [Concomitant]
     Active Substance: ACETAMINOPHEN
  6. METHOTREXATE. [Concomitant]
     Active Substance: METHOTREXATE
  7. PREDNISOLONE. [Suspect]
     Active Substance: PREDNISOLONE
     Route: 048
     Dates: end: 201712
  8. GABAPENTIN. [Concomitant]
     Active Substance: GABAPENTIN
  9. CALCICHEW-D3 [Concomitant]
     Active Substance: CALCIUM\CHOLECALCIFEROL
  10. BETOLVEX [Concomitant]
     Active Substance: CYANOCOBALAMIN
  11. DUROFERON [Concomitant]
     Active Substance: FERROUS SULFATE

REACTIONS (2)
  - Duodenal ulcer haemorrhage [Recovered/Resolved]
  - Anaemia [Recovered/Resolved]

NARRATIVE: CASE EVENT DATE: 20171226
